FAERS Safety Report 18245268 (Version 1)
Quarter: 2020Q3

REPORT INFORMATION
  Report Type: Spontaneous
  Country: US (occurrence: US)
  Receive Date: 20200909
  Receipt Date: 20200909
  Transmission Date: 20201103
  Serious: No
  Sender: FDA-Public Use
  Company Number: US-DRREDDYS-USA/USA/20/0126366

PATIENT
  Age: 62 Year
  Sex: Male
  Weight: 119.25 kg

DRUGS (2)
  1. GLIMEPIRIDE. [Concomitant]
     Active Substance: GLIMEPIRIDE
     Indication: PRODUCT USED FOR UNKNOWN INDICATION
  2. CIPROFLOXACIN. [Suspect]
     Active Substance: CIPROFLOXACIN
     Indication: INFECTION
     Dosage: CIPROFLOXACIN 1 TWICE A DAY FOR 2 WEEKS.
     Route: 048
     Dates: start: 20200826

REACTIONS (2)
  - Pyrexia [Unknown]
  - Blood pressure increased [Unknown]
